FAERS Safety Report 8520861-4 (Version None)
Quarter: 2012Q3

REPORT INFORMATION
  Report Type: 
  Country: None (occurrence: None)
  Receive Date: 20120719
  Receipt Date: 20120710
  Transmission Date: 20120928
  Serious: Yes (Other)
  Sender: FDA-Public Use
  Company Number: FI-JNJFOC-20120700567

PATIENT
  Age: 50 Year
  Sex: Female

DRUGS (4)
  1. INFLIXIMAB, RECOMBINANT [Suspect]
     Indication: PRODUCT USED FOR UNKNOWN INDICATION
     Route: 042
  2. METHOTREXATE [Concomitant]
     Route: 065
  3. HUMIRA [Suspect]
     Indication: PRODUCT USED FOR UNKNOWN INDICATION
     Dosage: 0.8 ML
     Route: 065
  4. AZATHIOPRINE [Concomitant]
     Route: 065

REACTIONS (7)
  - DRUG SPECIFIC ANTIBODY PRESENT [None]
  - BLOOD CREATINE INCREASED [None]
  - MYALGIA [None]
  - BLOOD DISORDER [None]
  - PANNICULITIS [None]
  - SERUM SICKNESS [None]
  - DRUG INEFFECTIVE [None]
